FAERS Safety Report 12069454 (Version 2)
Quarter: 2016Q1

REPORT INFORMATION
  Report Type: Other
  Country: US (occurrence: US)
  Receive Date: 20160211
  Receipt Date: 20160222
  Transmission Date: 20160526
  Serious: Yes (Other)
  Sender: FDA-Public Use
  Company Number: US-MEDAC PHARMA, INC.-1047680

PATIENT
  Age: 36 Year
  Sex: Male

DRUGS (6)
  1. ANAKINRA [Concomitant]
     Active Substance: ANAKINRA
  2. TRIAMCINOLONE ACETONIDE. [Concomitant]
     Active Substance: TRIAMCINOLONE ACETONIDE
     Route: 026
  3. CYCLOSPORINE. [Concomitant]
     Active Substance: CYCLOSPORINE
  4. METHOTREXATE [Suspect]
     Active Substance: METHOTREXATE
     Indication: PYODERMA GANGRENOSUM
  5. INFLIXIMAB [Concomitant]
     Active Substance: INFLIXIMAB
     Route: 026
  6. ADALIMUMAB [Concomitant]
     Active Substance: ADALIMUMAB

REACTIONS (2)
  - Pyoderma gangrenosum [None]
  - Condition aggravated [Recovering/Resolving]
